FAERS Safety Report 10774646 (Version 1)
Quarter: 2015Q1

REPORT INFORMATION
  Report Type: Spontaneous
  Country: US (occurrence: None)
  Receive Date: 20150206
  Receipt Date: 20150206
  Transmission Date: 20150721
  Serious: No
  Sender: FDA-Public Use
  Company Number: HYP201306-000026

PATIENT
  Age: 77 Year
  Sex: Male
  Weight: 78.9 kg

DRUGS (6)
  1. VITAMIN (VITAMIN) [Concomitant]
  2. RAVICTI [Suspect]
     Active Substance: GLYCEROL PHENYLBUTYRATE
     Indication: UREA CYCLE ENZYME DEFICIENCY
     Route: 048
     Dates: start: 20130523, end: 20130601
  3. GAS-X (SIMETHICONE) [Concomitant]
  4. UNSPECIFIED ANTI-EMETIC [Concomitant]
  5. ELOXATIN (OXALIPLATIN) [Suspect]
     Active Substance: OXALIPLATIN
     Indication: COLON CANCER
     Route: 042
     Dates: start: 201301
  6. XELODA [Suspect]
     Active Substance: CAPECITABINE
     Indication: COLON CANCER
     Dosage: ONE WEEK ON AND ONE WEEK OFF
     Route: 048

REACTIONS (3)
  - Dysgeusia [None]
  - Decreased appetite [None]
  - Weight decreased [None]

NARRATIVE: CASE EVENT DATE: 20130523
